FAERS Safety Report 4757392-3 (Version None)
Quarter: 2005Q3

REPORT INFORMATION
  Report Type: 
  Country: None (occurrence: None)
  Receive Date: 20050829
  Receipt Date: 20050818
  Transmission Date: 20060218
  Serious: Yes (Hospitalization, Other)
  Sender: FDA-Public Use
  Company Number: 2005117928

PATIENT
  Age: 15 Year
  Sex: Female
  Weight: 63.5 kg

DRUGS (3)
  1. ZOLOFT [Suspect]
     Indication: ILL-DEFINED DISORDER
  2. IBUPROFEN [Suspect]
     Indication: ILL-DEFINED DISORDER
  3. DIPHENHYDRAMINE HCL [Suspect]
     Indication: ILL-DEFINED DISORDER

REACTIONS (3)
  - BUNDLE BRANCH BLOCK RIGHT [None]
  - MULTIPLE DRUG OVERDOSE [None]
  - SOMNOLENCE [None]
